FAERS Safety Report 7362769-6 (Version None)
Quarter: 2011Q1

REPORT INFORMATION
  Report Type: 
  Country: None (occurrence: None)
  Receive Date: 20110321
  Receipt Date: 20110310
  Transmission Date: 20110831
  Serious: No
  Sender: FDA-Public Use
  Company Number: US-BIOGENIDEC-2011BI001103

PATIENT
  Age: 55 Year
  Sex: Female

DRUGS (1)
  1. TYSABRI [Suspect]
     Indication: MULTIPLE SCLEROSIS
     Route: 042
     Dates: start: 20100614

REACTIONS (5)
  - VISUAL ACUITY REDUCED [None]
  - HYPOAESTHESIA ORAL [None]
  - FATIGUE [None]
  - VERTIGO [None]
  - DIPLOPIA [None]
